FAERS Safety Report 4861658-6 (Version None)
Quarter: 2005Q4

REPORT INFORMATION
  Report Type: 
  Country: None (occurrence: None)
  Receive Date: 20051130
  Receipt Date: 20041130
  Transmission Date: 20060501
  Serious: Yes (Other)
  Sender: FDA-Public Use
  Company Number: 200421087BWH

PATIENT
  Sex: Male

DRUGS (1)
  1. CIPRO [Suspect]
     Indication: EXPOSURE TO TOXIC AGENT

REACTIONS (10)
  - ABDOMINAL PAIN [None]
  - AGITATION [None]
  - ARTHRALGIA [None]
  - BACK PAIN [None]
  - BURSITIS [None]
  - LIGAMENT INJURY [None]
  - LIGAMENT RUPTURE [None]
  - NERVOUSNESS [None]
  - PAIN IN EXTREMITY [None]
  - ROTATOR CUFF SYNDROME [None]
